FAERS Safety Report 24766853 (Version 1)
Quarter: 2024Q4

REPORT INFORMATION
  Report Type: Spontaneous
  Country: US (occurrence: US)
  Receive Date: 20241223
  Receipt Date: 20241223
  Transmission Date: 20250115
  Serious: No
  Sender: SANOFI AVENTIS
  Company Number: US-SA-2024SA376695

PATIENT
  Age: 50 Year
  Sex: Female

DRUGS (1)
  1. MULTAQ [Suspect]
     Active Substance: DRONEDARONE
     Indication: Atrial fibrillation
     Dosage: 0.5 DF, BID(1/2 TAB, 2 TIMES EVERY DAY)
     Route: 048

REACTIONS (1)
  - Off label use [Unknown]
